FAERS Safety Report 25003595 (Version 3)
Quarter: 2025Q2

REPORT INFORMATION
  Report Type: Spontaneous
  Country: GB (occurrence: GB)
  Receive Date: 20250224
  Receipt Date: 20250407
  Transmission Date: 20250716
  Serious: Yes (Death)
  Sender: MYLAN
  Company Number: GB-MYLANLABS-2025M1015716

PATIENT
  Age: 72 Year
  Sex: Female

DRUGS (11)
  1. CLOZARIL [Suspect]
     Active Substance: CLOZAPINE
     Indication: Schizoaffective disorder
     Dosage: UNK, BID (50MG MANE, 175MG NOCTE)
     Dates: start: 19970101
  2. CO-DYDRAMOL [Concomitant]
     Active Substance: ACETAMINOPHEN\DIHYDROCODEINE
     Dosage: 2 DOSAGE FORM, QID (TWO TO BE TAKEN UP TO FOUR TIMES DAILY (AS SUBSTITUTE FOR PARACETAMOL))
     Dates: start: 20240830, end: 20250213
  3. CLOZAPINE [Concomitant]
     Active Substance: CLOZAPINE
     Dosage: UNK, BID (TWO TABLETS MORNING AND THREE TABLETS AT NIGHT)
     Dates: start: 20190628, end: 20250205
  4. CLOZAPINE [Concomitant]
     Active Substance: CLOZAPINE
     Dosage: 1 DOSAGE FORM, PM (ONE TO BE TAKEN AT NIGHT)
     Dates: start: 20190628, end: 20250205
  5. ZOPICLONE [Concomitant]
     Active Substance: ZOPICLONE
     Dosage: 1 DOSAGE FORM, PM (ONE TO BE TAKEN AT NIGHT)
     Dates: start: 20190702, end: 20250205
  6. AMISULPRIDE [Concomitant]
     Active Substance: AMISULPRIDE
     Dosage: 1 DOSAGE FORM, PM (ONE TO BE TAKEN AT NIGHT)
     Dates: start: 20170907, end: 20250205
  7. AMITRIPTYLINE HYDROCHLORIDE [Concomitant]
     Active Substance: AMITRIPTYLINE HYDROCHLORIDE
     Dosage: 1 DOSAGE FORM, QD (ONE TO BE TAKEN IN THE EVENING)
     Dates: start: 20231213, end: 20250205
  8. VENLAFAXINE [Concomitant]
     Active Substance: VENLAFAXINE HYDROCHLORIDE
     Dosage: 1 DOSAGE FORM, QD (ONE TABLET DAILY)
     Dates: start: 20200128, end: 20250205
  9. MEBEVERINE HYDROCHLORIDE [Concomitant]
     Active Substance: MEBEVERINE HYDROCHLORIDE
     Dosage: 1 DOSAGE FORM, BID (1 TWICE A DAY 20 MIN BEFORE FOOD)
     Dates: start: 20221214, end: 20250205
  10. IBUPROFEN [Concomitant]
     Active Substance: IBUPROFEN
     Dosage: UNK, TID (APPLY THREE TIMES DAILY)
     Dates: start: 20250205, end: 20250205
  11. FOSFOMYCIN TROMETHAMINE [Concomitant]
     Active Substance: FOSFOMYCIN TROMETHAMINE
     Dates: start: 20250205, end: 20250205

REACTIONS (2)
  - Choking [Fatal]
  - Off label use [Unknown]

NARRATIVE: CASE EVENT DATE: 19970101
